FAERS Safety Report 20132607 (Version 1)
Quarter: 2021Q4

REPORT INFORMATION
  Report Type: Spontaneous
  Country: US (occurrence: US)
  Receive Date: 20211130
  Receipt Date: 20211130
  Transmission Date: 20220303
  Serious: Yes (Hospitalization)
  Sender: FDA-Public Use
  Company Number: US-NOVARTISPH-NVSC2021US268624

PATIENT
  Age: 46 Year
  Sex: Female

DRUGS (2)
  1. RANITIDINE [Suspect]
     Active Substance: RANITIDINE
     Indication: Hypersensitivity
     Dosage: 150 MG, BID
     Route: 048
     Dates: start: 200001, end: 201911
  2. RANITIDINE [Suspect]
     Active Substance: RANITIDINE
     Indication: Hypersensitivity
     Dosage: 150 MG, BID
     Route: 048
     Dates: start: 200001, end: 201911

REACTIONS (2)
  - Breast cancer stage IV [Recovering/Resolving]
  - Product use in unapproved indication [Unknown]

NARRATIVE: CASE EVENT DATE: 20131030
